FAERS Safety Report 15329733 (Version 1)
Quarter: 2018Q3

REPORT INFORMATION
  Report Type: Spontaneous
  Country: US (occurrence: US)
  Receive Date: 20180824
  Receipt Date: 20180824
  Transmission Date: 20181010
  Serious: No
  Sender: FDA-Public Use
  Company Number: None

PATIENT
  Age: 67 Year
  Sex: Male
  Weight: 108 kg

DRUGS (11)
  1. LOSORTAN POTASSIUM [Suspect]
     Active Substance: LOSARTAN POTASSIUM
     Indication: HYPERTENSION
     Dosage: ?          QUANTITY:1 TABLET(S);?
     Route: 048
     Dates: start: 20180822, end: 20180822
  2. LYCOPENE [Concomitant]
     Active Substance: LYCOPENE
  3. PASSION FLOWER [Concomitant]
     Active Substance: HERBALS\HOMEOPATHICS\PASSIFLORA INCARNATA FLOWER
  4. MAGNESIUM [Concomitant]
     Active Substance: MAGNESIUM
  5. TART CHERRY [Concomitant]
  6. L?THEANINE [Concomitant]
     Active Substance: DIETARY SUPPLEMENT
  7. BETA?SITOSTEROL [Concomitant]
  8. BENAZEPRIL [Concomitant]
     Active Substance: BENAZEPRIL HYDROCHLORIDE
  9. AMLODIPINE [Concomitant]
     Active Substance: AMLODIPINE BESYLATE
  10. IP?6 [Concomitant]
  11. VALERIAN [Concomitant]
     Active Substance: VALERIAN

REACTIONS (4)
  - Palpitations [None]
  - Myalgia [None]
  - Haematospermia [None]
  - Influenza [None]

NARRATIVE: CASE EVENT DATE: 20180822
